FAERS Safety Report 20660456 (Version 1)
Quarter: 2022Q1

REPORT INFORMATION
  Report Type: Other
  Country: None (occurrence: GB)
  Receive Date: 20220331
  Receipt Date: 20220331
  Transmission Date: 20220423
  Serious: Yes (Disabling)
  Sender: FDA-Public Use
  Company Number: GB-Air Products and Chemicals, Inc. -2127296

PATIENT
  Age: 65 Year
  Sex: Female

DRUGS (1)
  1. OXYGEN [Suspect]
     Active Substance: OXYGEN

REACTIONS (5)
  - Hypercapnia [None]
  - Medication error [None]
  - Headache [None]
  - Nausea [None]
  - Malaise [None]
